FAERS Safety Report 11877184 (Version 1)
Quarter: 2015Q4

REPORT INFORMATION
  Report Type: Spontaneous
  Country: US (occurrence: US)
  Receive Date: 20151229
  Receipt Date: 20151229
  Transmission Date: 20160305
  Serious: No
  Sender: FDA-Public Use
  Company Number: US-TARO-2015TAR00922

PATIENT
  Sex: Female
  Weight: 73.16 kg

DRUGS (26)
  1. MILK THISTLE EXTRACT OR [Concomitant]
     Dosage: 2 TABLETS, 2X/DAY
  2. MORPHINE [Concomitant]
     Active Substance: MORPHINE
     Dosage: 60 MG, 2X/DAY
  3. DITROPAN [Concomitant]
     Active Substance: OXYBUTYNIN CHLORIDE
     Dosage: 5 MG, 1X/DAY AT BEDTIME
     Route: 048
  4. TRIAMCINOLONE ACETONIDE CREAM 0.1% [Suspect]
     Active Substance: TRIAMCINOLONE ACETONIDE
     Indication: GENITAL PAIN
     Dosage: 1 DOSAGE UNIT APPLIED TO THE VAGINAL OPENING AND AREAS OF VULVAR PAIN, 2X/DAY
     Route: 061
     Dates: start: 20150730, end: 20150909
  5. ALPRAZOLAM. [Concomitant]
     Active Substance: ALPRAZOLAM
     Dosage: 0.5 MG, 3X/DAY
     Route: 048
  6. LIDOCAINE VISCOUS [Concomitant]
     Active Substance: LIDOCAINE HYDROCHLORIDE
     Dosage: 15 ML ORALLY, SWISHED AND SPIT OUT, EVERY 3 HOURS
     Route: 048
     Dates: start: 20150107, end: 20150909
  7. NITROSTAT [Concomitant]
     Active Substance: NITROGLYCERIN
     Dosage: 0.4 MG EVERY 5 MINUTES, AS NEEDED
     Route: 060
     Dates: start: 20150401
  8. ASPIRIN. [Concomitant]
     Active Substance: ASPIRIN
     Dosage: 81 MG, 1X/DAY
     Route: 048
  9. CYMBALTA [Concomitant]
     Active Substance: DULOXETINE HYDROCHLORIDE
     Dosage: 30 MG, UNK
  10. NITROGLYCERIN. [Concomitant]
     Active Substance: NITROGLYCERIN
     Dosage: 0.4 MG PATCH DAILY FOR 10-12 HOURS, REMOVED AT NIGHT
     Route: 062
     Dates: start: 20140814
  11. RESTASIS [Concomitant]
     Active Substance: CYCLOSPORINE
     Dosage: 1 GTT, 2X/DAY
     Route: 047
     Dates: start: 20131213
  12. VITAMIN D3 [Concomitant]
     Active Substance: CHOLECALCIFEROL
     Dosage: 4000 U, UNK
  13. EMLA [Concomitant]
     Active Substance: LIDOCAINE\PRILOCAINE
     Dosage: 1 DOSAGE UNITS, EVERY 5 HOURS
     Route: 061
     Dates: start: 20150813
  14. LYRICA [Concomitant]
     Active Substance: PREGABALIN
     Dosage: 50 MG, 1X/DAY
     Route: 048
     Dates: start: 20150810, end: 20150909
  15. ORENCIA [Concomitant]
     Active Substance: ABATACEPT
     Dosage: 750 MG, 1X/MONTH
     Route: 042
     Dates: start: 20150225
  16. POLYETHYLENE GLYCOL 3350. [Concomitant]
     Active Substance: POLYETHYLENE GLYCOL 3350
     Dosage: 17 G, 1X/DAY
     Route: 048
     Dates: start: 20141208
  17. BIOTIN [Concomitant]
     Active Substance: BIOTIN
     Dosage: 1000 ?G, 1X/DAY
     Route: 048
  18. OMEPRAZOLE. [Concomitant]
     Active Substance: OMEPRAZOLE
     Dosage: 40 MG, 1X/DAY
     Route: 048
     Dates: start: 20150401
  19. PROAIR HFA [Concomitant]
     Active Substance: ALBUTEROL SULFATE
     Dosage: 180 ?G, EVERY 4-6 HOURS AS NEEDED
     Dates: start: 20150406, end: 20150909
  20. ESTRING [Concomitant]
     Active Substance: ESTRADIOL
     Dosage: ONE RING PLACED EVERY 90 DAYS
     Route: 067
     Dates: start: 20150727
  21. ALDACTAZIDE [Concomitant]
     Active Substance: HYDROCHLOROTHIAZIDE\SPIRONOLACTONE
     Dosage: 25/25 MG, 1X/DAY
     Route: 048
  22. VALTREX [Concomitant]
     Active Substance: VALACYCLOVIR HYDROCHLORIDE
     Dosage: 1000 MG, 2X/DAY AS NEEDED
     Dates: start: 20150521
  23. MULTIPLE VITAMINS-MINERALS TABLET [Concomitant]
     Dosage: 1 TABLETS, UNK
  24. RED YEAST RICE EXTRACT 600 MG [Concomitant]
     Dosage: 600-1200 MG, 1X/DAY
  25. AMLODIPINE [Concomitant]
     Active Substance: AMLODIPINE BESYLATE
     Dosage: 2.5 MG, 1X/DAY
     Route: 048
  26. NORCO 10/325 MG [Concomitant]
     Dosage: 2 TABLETS, 3X/DAY
     Route: 048

REACTIONS (1)
  - Application site pain [Unknown]

NARRATIVE: CASE EVENT DATE: 2015
